FAERS Safety Report 7266033-5 (Version None)
Quarter: 2011Q1

REPORT INFORMATION
  Report Type: 
  Country: None (occurrence: None)
  Receive Date: 20110119
  Receipt Date: 20110106
  Transmission Date: 20110831
  Serious: Yes (Hospitalization, Other)
  Sender: FDA-Public Use
  Company Number: WAES 1005USA04594

PATIENT
  Age: 76 Year
  Sex: Female

DRUGS (11)
  1. AMLODIPINE BESYLATE [Concomitant]
  2. RIKKUNSHI-TO [Concomitant]
  3. BENIDIPINE HYDROCHLORIDE [Concomitant]
  4. EPAROSE [Concomitant]
  5. FLUVASTATIN [Concomitant]
  6. RIZE [Concomitant]
  7. ZOCOR [Concomitant]
  8. TAB NEW CALCICHEW D3 (CALCIUM CARBONATE (+) [Suspect]
     Indication: OSTEOPOROSIS
     Dosage: 2 DOSE/DAILY /PO
     Route: 048
     Dates: end: 20100819
  9. DIOVAN [Concomitant]
  10. FOSAMAX [Suspect]
     Indication: OSTEOPOROSIS
     Dosage: 35 MG/WKY/PO
     Route: 048
     Dates: start: 20090110, end: 20100814
  11. MERISLON [Concomitant]

REACTIONS (2)
  - PNEUMONIA [None]
  - LUNG NEOPLASM MALIGNANT [None]
